FAERS Safety Report 8191669-7 (Version None)
Quarter: 2012Q1

REPORT INFORMATION
  Report Type: 
  Country: None (occurrence: None)
  Receive Date: 20120307
  Receipt Date: 20110805
  Transmission Date: 20120608
  Serious: No
  Sender: FDA-Public Use
  Company Number: US-ASTRAZENECA-2011SE46932

PATIENT
  Age: 52 Year
  Sex: Female
  Weight: 49 kg

DRUGS (4)
  1. ACIPHEX [Concomitant]
  2. ZOMIG [Suspect]
     Indication: MIGRAINE
     Route: 048
  3. ZOMIG [Suspect]
     Route: 048
     Dates: start: 20060101
  4. FOMOTIDINE [Concomitant]

REACTIONS (8)
  - OESOPHAGEAL INJURY [None]
  - THROAT TIGHTNESS [None]
  - ABDOMINAL PAIN UPPER [None]
  - DYSPHONIA [None]
  - FEELING COLD [None]
  - OROPHARYNGEAL PAIN [None]
  - CHEST DISCOMFORT [None]
  - APHONIA [None]
